FAERS Safety Report 19829240 (Version 1)
Quarter: 2021Q3

REPORT INFORMATION
  Report Type: Report from Study
  Country: US (occurrence: US)
  Receive Date: 20210914
  Receipt Date: 20210914
  Transmission Date: 20211014
  Serious: Yes (Hospitalization)
  Sender: FDA-Public Use
  Company Number: US-BAYER-2021-202231

PATIENT
  Age: 54 Year
  Sex: Female
  Weight: 144.67 kg

DRUGS (1)
  1. ADEMPAS [Suspect]
     Active Substance: RIOCIGUAT
     Indication: PULMONARY ARTERIAL HYPERTENSION
     Dosage: 0.5 MG, TID
     Route: 048
     Dates: start: 20210520, end: 2021

REACTIONS (12)
  - Dyspnoea [Not Recovered/Not Resolved]
  - Obstructive airways disorder [None]
  - Hospitalisation [None]
  - Feeling abnormal [None]
  - Malaise [None]
  - Adverse drug reaction [Not Recovered/Not Resolved]
  - Cough [None]
  - Dizziness [None]
  - Pain [None]
  - Chest pain [Not Recovered/Not Resolved]
  - Musculoskeletal chest pain [None]
  - Drug ineffective [None]

NARRATIVE: CASE EVENT DATE: 2021
